FAERS Safety Report 4916115-5 (Version None)
Quarter: 2006Q1

REPORT INFORMATION
  Report Type: 
  Country: None (occurrence: None)
  Receive Date: 20060217
  Receipt Date: 20050414
  Transmission Date: 20060701
  Serious: Yes (Hospitalization, Disabling)
  Sender: FDA-Public Use
  Company Number: US-MERCK-0504USA02672

PATIENT
  Age: 37 Year
  Sex: Female
  Weight: 67 kg

DRUGS (2)
  1. VIOXX [Suspect]
     Indication: ARTHRITIS
     Route: 048
     Dates: start: 19990625, end: 20040401
  2. VIOXX [Suspect]
     Indication: RHEUMATOID ARTHRITIS
     Route: 048
     Dates: start: 19990625, end: 20040401

REACTIONS (6)
  - ANAEMIA [None]
  - ASTHMA [None]
  - LIMB INJURY [None]
  - MYOCARDIAL INFARCTION [None]
  - RIB FRACTURE [None]
  - VISUAL DISTURBANCE [None]
